FAERS Safety Report 7084867-7 (Version None)
Quarter: 2010Q4

REPORT INFORMATION
  Report Type: 
  Country: None (occurrence: None)
  Receive Date: 20101103
  Receipt Date: 20101103
  Transmission Date: 20110411
  Serious: No
  Sender: FDA-Public Use
  Company Number: None

PATIENT
  Age: 52 Year
  Sex: Female
  Weight: 64.4108 kg

DRUGS (1)
  1. ACTONEL [Suspect]
     Indication: BONE DENSITY ABNORMAL
     Dosage: 150MG PER MONTH
     Dates: start: 20101031, end: 20101031

REACTIONS (8)
  - ABDOMINAL PAIN UPPER [None]
  - BONE PAIN [None]
  - CHILLS [None]
  - DIARRHOEA [None]
  - DYSPEPSIA [None]
  - MALAISE [None]
  - MYALGIA [None]
  - PYREXIA [None]
